FAERS Safety Report 5894603-5 (Version None)
Quarter: 2008Q3

REPORT INFORMATION
  Report Type: 
  Country: None (occurrence: None)
  Receive Date: 20080922
  Receipt Date: 20080917
  Transmission Date: 20090109
  Serious: Yes (Hospitalization)
  Sender: FDA-Public Use
  Company Number: 2008AL009907

PATIENT
  Age: 77 Year
  Sex: Female
  Weight: 56.6996 kg

DRUGS (5)
  1. DIGOXIN [Suspect]
     Indication: PALPITATIONS
     Dosage: 0.125 MG, PO
     Route: 048
  2. ALLOPURINOL [Concomitant]
  3. ATENOLOL [Concomitant]
  4. WARFARIN SODIUM [Concomitant]
  5. LIPITOR [Concomitant]

REACTIONS (4)
  - CORONARY ARTERY BYPASS [None]
  - MALAISE [None]
  - PALPITATIONS [None]
  - SPEECH DISORDER [None]
